FAERS Safety Report 8226786-6 (Version None)
Quarter: 2012Q1

REPORT INFORMATION
  Report Type: 
  Country: None (occurrence: None)
  Receive Date: 20120322
  Receipt Date: 20120313
  Transmission Date: 20120608
  Serious: Yes (Hospitalization)
  Sender: FDA-Public Use
  Company Number: US-BAYER-2011-103463

PATIENT
  Age: 28 Year
  Sex: Female
  Weight: 92.971 kg

DRUGS (4)
  1. YAZ [Suspect]
     Dosage: UNK
     Dates: end: 20090710
  2. YAZ [Suspect]
     Indication: PREMENSTRUAL SYNDROME
     Dosage: UNK
     Route: 048
     Dates: start: 20090401, end: 20090701
  3. ANTIBIOTICS [Concomitant]
     Dosage: VARIOUS DATES
  4. ALEVE (CAPLET) [Concomitant]
     Dosage: UNK UNK, PRN

REACTIONS (4)
  - ABDOMINAL PAIN [None]
  - CHOLELITHIASIS [None]
  - CHOLECYSTITIS [None]
  - INJURY [None]
